FAERS Safety Report 21492995 (Version 1)
Quarter: 2022Q4

REPORT INFORMATION
  Report Type: Spontaneous
  Country: US (occurrence: US)
  Receive Date: 20221021
  Receipt Date: 20221021
  Transmission Date: 20230112
  Serious: No
  Sender: FDA-Public Use
  Company Number: US-Calliditas-2022CAL00396

PATIENT
  Age: 32 Year
  Sex: Male

DRUGS (1)
  1. TARPEYO [Suspect]
     Active Substance: BUDESONIDE
     Indication: Haematuria
     Dosage: 16MG (4MG CAPSULES) DAILY
     Route: 048
     Dates: start: 20220901

REACTIONS (2)
  - Back pain [Recovering/Resolving]
  - Blood pressure increased [Not Recovered/Not Resolved]
